FAERS Safety Report 12520398 (Version 1)
Quarter: 2016Q3

REPORT INFORMATION
  Report Type: Spontaneous
  Country: CA (occurrence: CA)
  Receive Date: 20160701
  Receipt Date: 20160701
  Transmission Date: 20161109
  Serious: Yes (Other)
  Sender: FDA-Public Use
  Company Number: CA-AMGEN-CANSP2016028207

PATIENT
  Age: 50 Year
  Sex: Female

DRUGS (5)
  1. METHOTREXATE. [Suspect]
     Active Substance: METHOTREXATE
     Indication: RHEUMATOID ARTHRITIS
     Dosage: 20 MG, QWK
     Route: 058
     Dates: start: 2004, end: 2014
  2. XELJANZ [Concomitant]
     Active Substance: TOFACITINIB CITRATE
     Indication: RHEUMATOID ARTHRITIS
     Dosage: 5 MG, BID
     Route: 048
     Dates: start: 20160315
  3. ENBREL [Suspect]
     Active Substance: ETANERCEPT
     Indication: RHEUMATOID ARTHRITIS
     Dosage: 50 MG, UNK
     Route: 058
     Dates: start: 2011, end: 2016
  4. SULFASALAZINE. [Suspect]
     Active Substance: SULFASALAZINE
     Indication: RHEUMATOID ARTHRITIS
     Dosage: 500 ML, BID
     Route: 065
     Dates: start: 201512, end: 2016
  5. PLAQUENIL [Concomitant]
     Active Substance: HYDROXYCHLOROQUINE SULFATE
     Dosage: 200 MG, BID
     Dates: start: 2004

REACTIONS (18)
  - Fall [Unknown]
  - C-reactive protein abnormal [Unknown]
  - Pain [Unknown]
  - Peripheral swelling [Recovering/Resolving]
  - Hypokinesia [Unknown]
  - Bed rest [Unknown]
  - Pain in extremity [Unknown]
  - Gait disturbance [Unknown]
  - Grip strength decreased [Unknown]
  - Dizziness [Unknown]
  - Arthralgia [Unknown]
  - Hepatotoxicity [Unknown]
  - Swelling [Unknown]
  - Rheumatoid factor positive [Unknown]
  - Red blood cell sedimentation rate abnormal [Unknown]
  - Hypersensitivity [Unknown]
  - Therapeutic response decreased [Unknown]
  - Joint swelling [Unknown]

NARRATIVE: CASE EVENT DATE: 201603
